FAERS Safety Report 9848769 (Version 2)
Quarter: 2014Q4

REPORT INFORMATION
  Report Type: Spontaneous
  Country: US (occurrence: None)
  Receive Date: 20131226
  Receipt Date: 20141128
  Transmission Date: 20150529
  Serious: Yes (Other)
  Sender: FDA-Public Use
  Company Number: PHEH2013US017878

PATIENT
  Age: 90 Year
  Sex: Female
  Weight: 64.9 kg

DRUGS (12)
  1. DESIPRAMINE HCL (DESIPRAMINE HYDROCHLORIDE) [Concomitant]
  2. COREG [Concomitant]
     Active Substance: CARVEDILOL
  3. LASIX [Concomitant]
     Active Substance: FUROSEMIDE
  4. NORPRAMIN (DESIPRAMINE HYDROCHLORIDE) [Concomitant]
  5. NORVASC [Concomitant]
     Active Substance: AMLODIPINE BESYLATE
  6. MULTIVITAMIN/VITAMINS NOS (VITAMINS NOS) [Concomitant]
  7. LORAZEPAM (LORAZEPAM) [Concomitant]
     Active Substance: LORAZEPAM
  8. ASPIRIN (ACETYLSALICYLIC ACID) [Concomitant]
     Active Substance: ASPIRIN
  9. KLOR-CON M10 (POTASSIUM CHLORIDE) [Concomitant]
  10. TEKTURNA [Suspect]
     Active Substance: ALISKIREN HEMIFUMARATE
     Indication: HYPERTENSION
     Route: 048
     Dates: start: 20090323, end: 20130813
  11. COUMADIN [Concomitant]
     Active Substance: WARFARIN SODIUM
  12. PRAVACHOL (PRAVASTATIN SODIUM) [Concomitant]

REACTIONS (4)
  - Eyelid oedema [None]
  - Anaphylactic reaction [None]
  - Periorbital oedema [None]
  - Angioedema [None]

NARRATIVE: CASE EVENT DATE: 20130813
